FAERS Safety Report 7209684-6 (Version None)
Quarter: 2011Q1

REPORT INFORMATION
  Report Type: 
  Country: None (occurrence: None)
  Receive Date: 20110104
  Receipt Date: 20110104
  Transmission Date: 20110831
  Serious: Yes (Other)
  Sender: FDA-Public Use
  Company Number: SK-PFIZER INC-2010164538

PATIENT
  Age: 62 Year
  Sex: Male

DRUGS (2)
  1. SILDENAFIL CITRATE [Suspect]
     Indication: ERECTILE DYSFUNCTION
     Dosage: 3X/WEEK
     Route: 048
     Dates: start: 20050101
  2. CONCOR [Concomitant]
     Dosage: 5 MG, UNK
     Route: 048
     Dates: start: 19980101

REACTIONS (1)
  - THROMBOCYTOPENIA [None]
